FAERS Safety Report 4674343-0 (Version None)
Quarter: 2005Q2

REPORT INFORMATION
  Report Type: 
  Country: None (occurrence: None)
  Receive Date: 20050526
  Receipt Date: 20050517
  Transmission Date: 20051028
  Serious: Yes (Other)
  Sender: FDA-Public Use
  Company Number: GB-BRISTOL-MYERS SQUIBB COMPANY-12970521

PATIENT
  Age: 67 Year
  Sex: Female

DRUGS (5)
  1. IRBESARTAN [Suspect]
     Indication: HYPERTENSION
     Route: 048
     Dates: start: 20041210, end: 20050421
  2. ARTHROTEC [Concomitant]
  3. BENDROFLUMETHIAZIDE [Concomitant]
     Route: 048
  4. CALCICHEW D3 [Concomitant]
     Route: 048
  5. MONOCOR [Concomitant]

REACTIONS (3)
  - ACTIVITIES OF DAILY LIVING IMPAIRED [None]
  - DIFFICULTY IN WALKING [None]
  - MYALGIA [None]
